FAERS Safety Report 4965989-0 (Version None)
Quarter: 2006Q2

REPORT INFORMATION
  Report Type: 
  Country: None (occurrence: None)
  Receive Date: 20060403
  Receipt Date: 20060321
  Transmission Date: 20061013
  Serious: Yes (Hospitalization, Other)
  Sender: FDA-Public Use
  Company Number: 2004026167

PATIENT
  Age: 38 Year
  Sex: Female
  Weight: 99.7913 kg

DRUGS (4)
  1. BENADRYL [Suspect]
     Indication: URTICARIA
     Dosage: 8 TO 10 KAPSEALS ONCE DAILY AS NEEDED, ORAL
     Route: 048
     Dates: start: 20040101
  2. BENADRYL [Suspect]
  3. ANALGESICS (ANALGESICS) [Concomitant]
  4. LEVOTHYROXINE SODIUM [Concomitant]

REACTIONS (12)
  - ANGINA PECTORIS [None]
  - BREAST PAIN [None]
  - CHOLELITHIASIS [None]
  - DIFFICULTY IN WALKING [None]
  - FATIGUE [None]
  - MUSCULOSKELETAL CHEST PAIN [None]
  - OEDEMA PERIPHERAL [None]
  - ORAL PAIN [None]
  - PAIN IN EXTREMITY [None]
  - PANCREATITIS [None]
  - THROMBOSIS [None]
  - VASCULAR OCCLUSION [None]
